FAERS Safety Report 8719581 (Version 2)
Quarter: 2012Q4

REPORT INFORMATION
  Report Type: 
  Country: AU (occurrence: AU)
  Receive Date: 20120813
  Receipt Date: 20121003
  Transmission Date: 20130627
  Serious: Yes (Hospitalization)
  Sender: FDA-Public Use
  Company Number: AU-SANOFI-AVENTIS-2012SA056086

PATIENT
  Age: 66 Year
  Sex: Male

DRUGS (9)
  1. LANTUS [Suspect]
     Indication: DRUG USE FOR UNKNOWN INDICATION
     Dosage: dose reduced to 50
     Route: 058
     Dates: start: 20100801
  2. DIAFORMIN [Concomitant]
  3. NATRILIX [Concomitant]
  4. DIAMICRON [Concomitant]
  5. TENORMIN [Concomitant]
  6. ATORVASTATIN [Concomitant]
  7. PERINDOPRIL [Concomitant]
  8. VENLAFAXINE HYDROCHLORIDE [Concomitant]
  9. ESOMEPRAZOLE [Concomitant]

REACTIONS (4)
  - Gastric cancer [Unknown]
  - Hypoglycaemia [Recovered/Resolved]
  - Syncope [Recovered/Resolved]
  - Mobility decreased [Unknown]
